FAERS Safety Report 7768982-8 (Version None)
Quarter: 2011Q3

REPORT INFORMATION
  Report Type: 
  Country: None (occurrence: None)
  Receive Date: 20110922
  Receipt Date: 20101102
  Transmission Date: 20111222
  Serious: No
  Sender: FDA-Public Use
  Company Number: US-ASTRAZENECA-2010SE52302

PATIENT
  Age: 32 Year
  Sex: Male

DRUGS (6)
  1. VALIUM [Concomitant]
  2. PAXIL [Concomitant]
  3. CELEXA [Concomitant]
  4. SEROQUEL XR [Suspect]
     Indication: BIPOLAR DISORDER
     Route: 048
     Dates: start: 20100601
  5. WELLBUTRIN [Concomitant]
  6. ZOLOFT [Concomitant]

REACTIONS (2)
  - BRADYPHRENIA [None]
  - SOMNOLENCE [None]
